FAERS Safety Report 19644461 (Version 9)
Quarter: 2022Q4

REPORT INFORMATION
  Report Type: Spontaneous
  Country: CA (occurrence: CA)
  Receive Date: 20210801
  Receipt Date: 20221018
  Transmission Date: 20230113
  Serious: Yes (Other)
  Sender: FDA-Public Use
  Company Number: CA-CELLTRION INC.-2021CA005083

PATIENT

DRUGS (30)
  1. INFLECTRA [Suspect]
     Active Substance: INFLIXIMAB-DYYB
     Indication: Crohn^s disease
     Dosage: 5 MG/KG (ROUNDED TO THE NEAREST VIAL 0, 2, 6 WEEKS, THEN EVERY 8 WEEKS )
     Route: 042
     Dates: start: 20171206, end: 20210211
  2. INFLECTRA [Suspect]
     Active Substance: INFLIXIMAB-DYYB
     Dosage: 5 MG/KG (ROUNDED TO THE NEAREST VIAL 0, 2, 6 WEEKS, THEN EVERY 8 WEEKS )
     Route: 042
     Dates: start: 20210211
  3. INFLECTRA [Suspect]
     Active Substance: INFLIXIMAB-DYYB
     Dosage: 300 MG (5 MG/KG (ROUNDED TO THE NEAREST VIAL 0, 2, 6 WEEKS, THEN EVERY 8 WEEKS )
     Route: 042
     Dates: start: 20210408
  4. INFLECTRA [Suspect]
     Active Substance: INFLIXIMAB-DYYB
     Dosage: 5 MG/KG EVERY 7 WEEKS
     Route: 042
     Dates: start: 20210408
  5. INFLECTRA [Suspect]
     Active Substance: INFLIXIMAB-DYYB
     Dosage: 300 MG (5 MG/KG (ROUNDED TO THE NEAREST VIAL 0, 2, 6 WEEKS, THEN EVERY 8 WEEKS )
     Route: 042
     Dates: start: 20210603
  6. INFLECTRA [Suspect]
     Active Substance: INFLIXIMAB-DYYB
     Dosage: 5 MG/KG EVERY 7 WEEKS
     Route: 042
     Dates: start: 20210603
  7. INFLECTRA [Suspect]
     Active Substance: INFLIXIMAB-DYYB
     Dosage: 5 MG/KG EVERY 7 WEEKS
     Route: 042
     Dates: start: 20210222
  8. INFLECTRA [Suspect]
     Active Substance: INFLIXIMAB-DYYB
     Dosage: 300 MG (5 MG/KG EVERY 7 WEEKS)
     Route: 042
     Dates: start: 20210722
  9. INFLECTRA [Suspect]
     Active Substance: INFLIXIMAB-DYYB
     Dosage: 300 MG (5 MG/KG EVERY 7 WEEKS)
     Route: 042
     Dates: start: 20210909
  10. INFLECTRA [Suspect]
     Active Substance: INFLIXIMAB-DYYB
     Dosage: 300 MG (5 MG/KG EVERY 7 WEEKS)
     Route: 042
     Dates: start: 20210909
  11. INFLECTRA [Suspect]
     Active Substance: INFLIXIMAB-DYYB
     Dosage: 300 MG (5 MG/KG EVERY 7 WEEKS)
     Route: 042
     Dates: start: 20211028
  12. INFLECTRA [Suspect]
     Active Substance: INFLIXIMAB-DYYB
     Dosage: 300 MG (5 MG/KG EVERY 7 WEEKS)
     Route: 042
     Dates: start: 20211216
  13. INFLECTRA [Suspect]
     Active Substance: INFLIXIMAB-DYYB
     Dosage: 300 MG (5 MG/KG EVERY 7 WEEKS)
     Route: 042
     Dates: start: 20220202
  14. INFLECTRA [Suspect]
     Active Substance: INFLIXIMAB-DYYB
     Dosage: 300 MG (5 MG/KG EVERY 7 WEEKS)
     Route: 042
     Dates: start: 20220324
  15. INFLECTRA [Suspect]
     Active Substance: INFLIXIMAB-DYYB
     Dosage: 5 MG/KG EVERY 7 WEEKS
     Route: 042
     Dates: start: 20220630
  16. INFLECTRA [Suspect]
     Active Substance: INFLIXIMAB-DYYB
     Dosage: 5 MG/KG EVERY 7 WEEKS
     Route: 042
     Dates: start: 20220818
  17. INFLECTRA [Suspect]
     Active Substance: INFLIXIMAB-DYYB
     Dosage: 5 MG/KG EVERY 7 WEEKS
     Route: 042
     Dates: start: 20221006
  18. ASPIRIN [Concomitant]
     Active Substance: ASPIRIN
     Dosage: 1 DF DOSAGE IS UNKNOWN
     Route: 065
  19. CRESTOR [Concomitant]
     Active Substance: ROSUVASTATIN CALCIUM
     Dosage: 1 DF DOSAGE IS UNKNOWN
     Route: 065
  20. DIOVAN [Concomitant]
     Active Substance: VALSARTAN
     Dosage: 1 DF DOSAGE IS UNKNOWN
     Route: 065
  21. DOMPERIDONE [Concomitant]
     Active Substance: DOMPERIDONE
     Dosage: 1 DF DOSAGE IS UNKNOWN
     Route: 065
  22. ENTOCORT [Concomitant]
     Active Substance: BUDESONIDE
     Dosage: 1 DF DOSAGE IS UNKNOWN
     Route: 065
  23. EFUDEX [Concomitant]
     Active Substance: FLUOROURACIL
     Dosage: 1 DF, 5 % DOSAGE IS UNKNOWN
     Route: 061
  24. FOLIC ACID [Concomitant]
     Active Substance: FOLIC ACID
     Dosage: 1 DF DOSAGE IS UNKNOWN
     Route: 065
  25. LOSEC [Concomitant]
     Active Substance: OMEPRAZOLE
     Dosage: 1 DF DOSAGE IS UNKNOWN
     Route: 065
  26. METFORMIN [Concomitant]
     Active Substance: METFORMIN HYDROCHLORIDE
     Dosage: 1 DF DOSAGE IS UNKNOWN
     Route: 065
  27. METHOTREXATE [Concomitant]
     Active Substance: METHOTREXATE
     Indication: Crohn^s disease
     Dosage: 15 MG, FREQUENCY IS UNKNOWN
     Route: 048
     Dates: start: 201609
  28. NORVASC [Concomitant]
     Active Substance: AMLODIPINE BESYLATE
     Dosage: 1 DF DOSAGE IS UNKNOWN
     Route: 065
  29. SYNTHROID [Concomitant]
     Active Substance: LEVOTHYROXINE SODIUM
     Dosage: 1 DF DOSAGE IS UNKNOWN
     Route: 065
  30. CHOLECALCIFEROL [Concomitant]
     Active Substance: CHOLECALCIFEROL
     Dosage: 1 DF DOSAGE IS UNKNOWN
     Route: 065

REACTIONS (9)
  - Skin cancer [Unknown]
  - Therapeutic response shortened [Unknown]
  - Off label use [Unknown]
  - Incorrect dose administered [Unknown]
  - Asthenia [Unknown]
  - Fatigue [Unknown]
  - Blood pressure fluctuation [Unknown]
  - Heart rate decreased [Unknown]
  - Condition aggravated [Recovered/Resolved]

NARRATIVE: CASE EVENT DATE: 20210722
